FAERS Safety Report 19667057 (Version 1)
Quarter: 2021Q3

REPORT INFORMATION
  Report Type: Spontaneous
  Country: CN (occurrence: CN)
  Receive Date: 20210806
  Receipt Date: 20210806
  Transmission Date: 20211014
  Serious: Yes (Hospitalization)
  Sender: FDA-Public Use
  Company Number: CN-ASTRAZENECA-2021A660391

PATIENT
  Age: 28490 Day
  Sex: Male
  Weight: 60 kg

DRUGS (4)
  1. DAPAGLIFLOZIN. [Suspect]
     Active Substance: DAPAGLIFLOZIN
     Indication: PROPHYLAXIS
     Route: 048
     Dates: start: 20210725, end: 20210730
  2. DAPAGLIFLOZIN. [Suspect]
     Active Substance: DAPAGLIFLOZIN
     Indication: BLOOD GLUCOSE
     Route: 048
     Dates: start: 20210725, end: 20210730
  3. INSULIN PROTAMINE ZINC [Suspect]
     Active Substance: INSULIN NOS
     Indication: PROPHYLAXIS
     Dosage: 8 UNITS, TWO TIMES A DAY
     Route: 058
     Dates: start: 20210725, end: 20210730
  4. INSULIN PROTAMINE ZINC [Suspect]
     Active Substance: INSULIN NOS
     Indication: BLOOD GLUCOSE
     Dosage: 8 UNITS, TWO TIMES A DAY
     Route: 058
     Dates: start: 20210725, end: 20210730

REACTIONS (2)
  - Vomiting [Unknown]
  - Hypoglycaemic coma [Recovering/Resolving]

NARRATIVE: CASE EVENT DATE: 20210730
